FAERS Safety Report 25492480 (Version 1)
Quarter: 2025Q2

REPORT INFORMATION
  Report Type: Spontaneous
  Country: CN (occurrence: CN)
  Receive Date: 20250630
  Receipt Date: 20250630
  Transmission Date: 20250717
  Serious: Yes (Other)
  Sender: GLAND PHARMA LTD
  Company Number: CN-GLANDPHARMA-CN-2025GLNLIT01559

PATIENT
  Age: 66 Year
  Sex: Female

DRUGS (13)
  1. OXALIPLATIN [Suspect]
     Active Substance: OXALIPLATIN
     Indication: Colorectal cancer metastatic
     Route: 065
     Dates: start: 20231028, end: 2023
  2. OXALIPLATIN [Suspect]
     Active Substance: OXALIPLATIN
     Indication: Colorectal cancer metastatic
  3. RALTITREXED [Suspect]
     Active Substance: RALTITREXED
     Indication: Colorectal cancer metastatic
     Route: 065
     Dates: start: 20231028, end: 2023
  4. RALTITREXED [Suspect]
     Active Substance: RALTITREXED
     Indication: Colorectal cancer metastatic
  5. XELODA [Concomitant]
     Active Substance: CAPECITABINE
     Route: 065
     Dates: start: 202008, end: 202012
  6. XELODA [Concomitant]
     Active Substance: CAPECITABINE
     Indication: Metastases to lymph nodes
     Route: 065
     Dates: end: 202204
  7. XELODA [Concomitant]
     Active Substance: CAPECITABINE
     Route: 065
     Dates: end: 202211
  8. FLUOROURACIL [Concomitant]
     Active Substance: FLUOROURACIL
     Route: 065
     Dates: start: 202301, end: 202306
  9. FLUOROURACIL [Concomitant]
     Active Substance: FLUOROURACIL
     Indication: Metastases to lymph nodes
     Route: 065
     Dates: start: 202204, end: 202207
  10. IRINOTECAN [Concomitant]
     Active Substance: IRINOTECAN
     Route: 065
     Dates: start: 202204, end: 202207
  11. IRINOTECAN [Concomitant]
     Active Substance: IRINOTECAN
     Indication: Metastases to lymph nodes
     Route: 065
     Dates: start: 202301, end: 202306
  12. BEVACIZUMAB [Concomitant]
     Active Substance: BEVACIZUMAB
     Route: 065
     Dates: start: 202204, end: 202207
  13. BEVACIZUMAB [Concomitant]
     Active Substance: BEVACIZUMAB
     Route: 065
     Dates: start: 202301, end: 202306

REACTIONS (1)
  - Gastrointestinal disorder [Recovered/Resolved]

NARRATIVE: CASE EVENT DATE: 20230101
